FAERS Safety Report 4885792-X (Version None)
Quarter: 2006Q1

REPORT INFORMATION
  Report Type: 
  Country: None (occurrence: None)
  Receive Date: 20060117
  Receipt Date: 20060113
  Transmission Date: 20060701
  Serious: Yes (Hospitalization)
  Sender: FDA-Public Use
  Company Number: HQWYE163003JAN06

PATIENT
  Age: 3 Year
  Sex: Female

DRUGS (2)
  1. CHILDREN'S ADVIL [Suspect]
     Indication: PYREXIA
     Dosage: ONE DOSE FOR 15 KG EVERY 6 HOURS
     Route: 048
     Dates: start: 20051201, end: 20051204
  2. ACETAMINOPHEN [Concomitant]

REACTIONS (10)
  - ACTIVATED PARTIAL THROMBOPLASTIN TIME PROLONGED [None]
  - DIARRHOEA [None]
  - DRUG INEFFECTIVE [None]
  - HAEMOGLOBIN DECREASED [None]
  - HAEMOLYTIC ANAEMIA [None]
  - HEPATITIS [None]
  - LUNG DISORDER [None]
  - ORAL INTAKE REDUCED [None]
  - PLATELET COUNT DECREASED [None]
  - PNEUMOCOCCAL INFECTION [None]
